FAERS Safety Report 9221917 (Version 1)
Quarter: 2013Q2

REPORT INFORMATION
  Report Type: Spontaneous
  Country: US (occurrence: None)
  Receive Date: 20130410
  Receipt Date: 20130410
  Transmission Date: 20140414
  Serious: Yes (Hospitalization)
  Sender: FDA-Public Use
  Company Number: None

PATIENT
  Age: 68 Year
  Sex: Male
  Weight: 75 kg

DRUGS (6)
  1. COUMADIN [Suspect]
     Indication: AORTIC VALVE DISEASE
     Dosage: 2.5MG / 5MG    SMTW / THFS     PO?RECENT
     Route: 048
  2. COUMADIN [Suspect]
     Indication: THROMBOSIS
     Dosage: 2.5MG / 5MG    SMTW / THFS     PO?RECENT
     Route: 048
  3. PLAVIX [Suspect]
     Indication: CORONARY ARTERY DISEASE
     Dosage: 75MG  DAILY  PO?CHRONIC
     Route: 048
  4. ASPIRIN [Suspect]
     Indication: CORONARY ARTERY DISEASE
     Dosage: CHRONIC
     Route: 048
  5. LISINOPRIL [Concomitant]
  6. LIPITOR [Concomitant]

REACTIONS (5)
  - Anaemia [None]
  - Presyncope [None]
  - Upper gastrointestinal haemorrhage [None]
  - Gastric ulcer [None]
  - Gastritis [None]
